FAERS Safety Report 8032547-3 (Version None)
Quarter: 2011Q4

REPORT INFORMATION
  Report Type: 
  Country: None (occurrence: None)
  Receive Date: 20111202
  Receipt Date: 20110124
  Transmission Date: 20120403
  Serious: Yes (Other)
  Sender: FDA-Public Use
  Company Number: WAES 1101USA02935

PATIENT
  Age: 57 Year
  Sex: Female
  Weight: 65.7716 kg

DRUGS (7)
  1. ENTRACE [Concomitant]
  2. LEVOTHYROXINE SODIUM [Concomitant]
  3. ALENDRONATE SODIUM [Suspect]
     Dosage: 70 MG/WKY/PO
     Route: 048
     Dates: start: 20100206, end: 20100306
  4. ALENDRONATE SODIUM [Suspect]
     Indication: OSTEOPOROSIS
     Dosage: 70 MG/WKY/PO
     Route: 048
     Dates: start: 20090121, end: 20100105
  5. ALENDRONATE SODIUM [Suspect]
     Indication: OSTEOPENIA
     Dosage: 70 MG/WKY/PO
     Route: 048
     Dates: start: 20090121, end: 20100105
  6. FOSAMAX [Suspect]
     Indication: OSTEOPOROSIS
     Dosage: 70 MG/WKY/PO
     Route: 048
     Dates: start: 20090121, end: 20100401
  7. FOSAMAX [Suspect]
     Indication: OSTEOPENIA
     Dosage: 70 MG/WKY/PO
     Route: 048
     Dates: start: 20090121, end: 20100401

REACTIONS (13)
  - ARTHROPOD BITE [None]
  - EXOSTOSIS [None]
  - LICHEN SCLEROSUS [None]
  - LYMPHADENOPATHY [None]
  - ERYTHEMA [None]
  - BRONCHITIS [None]
  - JOINT SWELLING [None]
  - DIARRHOEA [None]
  - TEMPOROMANDIBULAR JOINT SYNDROME [None]
  - IMPAIRED HEALING [None]
  - OSTEONECROSIS OF JAW [None]
  - TOOTH FRACTURE [None]
  - ORAL PAIN [None]
